FAERS Safety Report 9596246 (Version 2)
Quarter: 2013Q4

REPORT INFORMATION
  Report Type: Report from Study
  Country: US (occurrence: US)
  Receive Date: 20131004
  Receipt Date: 20131016
  Transmission Date: 20140711
  Serious: Yes (Hospitalization)
  Sender: FDA-Public Use
  Company Number: US-ACTELION-A-US2013-89002

PATIENT
  Age: 85 Year
  Sex: Female

DRUGS (13)
  1. TRACLEER [Suspect]
     Indication: PULMONARY ARTERIAL HYPERTENSION
     Dosage: 125 MG, BID
     Route: 048
     Dates: start: 20130510
  2. TRACLEER [Suspect]
     Dosage: UNK
     Route: 048
     Dates: start: 20130510, end: 2013
  3. LEVOTHYROXINE [Concomitant]
     Dosage: 50 MCG, QD
     Dates: start: 2008
  4. AMLODIPINE [Concomitant]
     Dosage: 5 MG, QD
     Dates: start: 2008
  5. FUROSEMIDE [Concomitant]
     Dosage: 40 MG, QD
     Dates: start: 2008
  6. ISOSORBIDE MONONITRATE [Concomitant]
     Dosage: 30 MG, QD
     Dates: start: 2008
  7. CLOPIDOGREL [Concomitant]
     Dosage: 75 MG, UNK
     Dates: start: 2008
  8. ASPIRIN [Concomitant]
     Dosage: 81 MG, QD
     Dates: start: 2008
  9. LISINOPRIL [Concomitant]
     Dosage: 20 MG, QD
     Dates: start: 2008
  10. JANTOVEN [Concomitant]
     Dosage: 5 MG, UNK
     Dates: start: 2008
  11. ATORVASTATIN [Concomitant]
     Dosage: 20 MG, QD
     Dates: start: 2008
  12. CALCIUM [Concomitant]
     Dosage: 600 MG, BID
     Dates: start: 2008
  13. METOPROLOL [Concomitant]
     Dosage: 25 MG, UNK
     Dates: start: 2008

REACTIONS (6)
  - Acute myocardial infarction [Recovered/Resolved]
  - Cardiac pacemaker insertion [Recovered/Resolved]
  - Chest pain [Recovered/Resolved]
  - Sciatica [Recovering/Resolving]
  - Coronary artery disease [Recovered/Resolved]
  - Bradycardia [Recovered/Resolved]
